FAERS Safety Report 24739396 (Version 1)
Quarter: 2024Q4

REPORT INFORMATION
  Report Type: Spontaneous
  Country: US (occurrence: US)
  Receive Date: 20241216
  Receipt Date: 20241216
  Transmission Date: 20250114
  Serious: Yes (Other)
  Sender: AMGEN
  Company Number: US-AMGEN-USASP2024243539

PATIENT

DRUGS (2)
  1. PREDNISONE [Suspect]
     Active Substance: PREDNISONE
     Indication: Chronic graft versus host disease
     Dosage: UNK
     Route: 065
  2. ALDESLEUKIN [Concomitant]
     Active Substance: ALDESLEUKIN
     Indication: Chronic graft versus host disease
     Dosage: 1X10^6 IU/M2, QD
     Route: 058

REACTIONS (1)
  - Bacteraemia [Unknown]
